FAERS Safety Report 8605428 (Version 2)
Quarter: 2014Q3

REPORT INFORMATION
  Report Type: Spontaneous
  Country: US (occurrence: US)
  Receive Date: 20120608
  Receipt Date: 20140709
  Transmission Date: 20150326
  Serious: Yes (Hospitalization)
  Sender: FDA-Public Use
  Company Number: US-GLAXOSMITHKLINE-A0875248A

PATIENT
  Sex: Male
  Weight: 204.5 kg

DRUGS (4)
  1. AVANDIA [Suspect]
     Active Substance: ROSIGLITAZONE MALEATE
     Indication: DIABETES MELLITUS
     Dosage: 4MG PER DAY
     Route: 048
     Dates: start: 1999, end: 20060226
  2. LABETALOL [Concomitant]
     Active Substance: LABETALOL\LABETALOL HYDROCHLORIDE
  3. LIPITOR [Concomitant]
     Active Substance: ATORVASTATIN CALCIUM
  4. INSULIN [Concomitant]
     Active Substance: INSULIN NOS

REACTIONS (2)
  - Cardiac failure congestive [Not Recovered/Not Resolved]
  - Coronary artery disease [Unknown]
